FAERS Safety Report 15955020 (Version 1)
Quarter: 2019Q1

REPORT INFORMATION
  Report Type: Spontaneous
  Country: US (occurrence: US)
  Receive Date: 20190121
  Receipt Date: 20190121
  Transmission Date: 20190417
  Serious: No
  Sender: FDA-Public Use
  Company Number: None

PATIENT
  Age: 60 Year
  Sex: Female

DRUGS (1)
  1. IBRANCE [Suspect]
     Active Substance: PALBOCICLIB
     Indication: BREAST CANCER
     Dosage: 125MG 21 DAYS ON 7 DAYS OFF?
     Route: 048
     Dates: start: 20180404, end: 20181205

REACTIONS (1)
  - Metastases to spine [None]

NARRATIVE: CASE EVENT DATE: 20190118
